FAERS Safety Report 24728110 (Version 1)
Quarter: 2024Q4

REPORT INFORMATION
  Report Type: Spontaneous
  Country: US (occurrence: None)
  Receive Date: 20241212
  Receipt Date: 20241212
  Transmission Date: 20250114
  Serious: Yes (Hospitalization)
  Sender: Public
  Company Number: None

PATIENT
  Age: 63 Year
  Sex: Male
  Weight: 103 kg

DRUGS (3)
  1. HEPARIN SODIUM [Suspect]
     Active Substance: HEPARIN SODIUM
     Indication: Deep vein thrombosis
     Dosage: FREQUENCY : 3 TIMES A DAY;?
     Route: 058
  2. ENOXAPARIN [Suspect]
     Active Substance: ENOXAPARIN
  3. LINEZOLID [Suspect]
     Active Substance: LINEZOLID

REACTIONS (5)
  - Heparin-induced thrombocytopenia [None]
  - Haemoglobin decreased [None]
  - Myelosuppression [None]
  - Deep vein thrombosis [None]
  - Heparin-induced thrombocytopenia test [None]

NARRATIVE: CASE EVENT DATE: 20240325
